FAERS Safety Report 8956001 (Version 1)
Quarter: 2012Q4

REPORT INFORMATION
  Report Type: 
  Country: US (occurrence: US)
  Receive Date: 20121210
  Receipt Date: 20121210
  Transmission Date: 20130627
  Serious: Yes (Hospitalization)
  Sender: FDA-Public Use
  Company Number: US-NOVOPROD-365556

PATIENT
  Age: 83 Year
  Sex: Female
  Weight: 53.06 kg

DRUGS (2)
  1. NOVOLOG FLEXPEN [Suspect]
     Indication: TYPE 2 DIABETES MELLITUS
     Dosage: 6 IU, tid with meals
     Route: 058
  2. LEVEMIR FLEXPEN [Suspect]
     Indication: TYPE 2 DIABETES MELLITUS
     Dosage: 6 IU, qd at night
     Route: 058

REACTIONS (4)
  - Fall [Recovered/Resolved]
  - Wound haemorrhage [Recovered/Resolved]
  - Back pain [Not Recovered/Not Resolved]
  - Blood glucose decreased [Recovered/Resolved]
